FAERS Safety Report 18244045 (Version 3)
Quarter: 2020Q3

REPORT INFORMATION
  Report Type: Spontaneous
  Country: US (occurrence: US)
  Receive Date: 20200908
  Receipt Date: 20200923
  Transmission Date: 20201103
  Serious: No
  Sender: FDA-Public Use
  Company Number: NVSC2020US242410

PATIENT
  Sex: Female

DRUGS (1)
  1. PATADAY [Suspect]
     Active Substance: OLOPATADINE HYDROCHLORIDE
     Indication: PRODUCT USED FOR UNKNOWN INDICATION
     Dosage: UNK, PATADAY TWICE DAILY RELIEF, 2 BOTTLES
     Route: 047

REACTIONS (7)
  - Eye pruritus [Recovering/Resolving]
  - Dry eye [Recovering/Resolving]
  - Product quality issue [Recovering/Resolving]
  - Ocular discomfort [Recovering/Resolving]
  - Ocular hyperaemia [Recovering/Resolving]
  - Eye irritation [Recovering/Resolving]
  - Therapeutic product ineffective [Recovering/Resolving]
